FAERS Safety Report 7463537-7 (Version None)
Quarter: 2011Q2

REPORT INFORMATION
  Report Type: 
  Country: None (occurrence: None)
  Receive Date: 20110506
  Receipt Date: 20110426
  Transmission Date: 20111010
  Serious: Yes (Other)
  Sender: FDA-Public Use
  Company Number: SE-SANOFI-AVENTIS-2011SA026256

PATIENT
  Age: 68 Year
  Sex: Male
  Weight: 76.1 kg

DRUGS (34)
  1. BLINDED THERAPY [Suspect]
     Route: 048
     Dates: start: 20110202
  2. OXYCODONE [Concomitant]
     Route: 048
     Dates: start: 20101230
  3. OXYCODONE [Concomitant]
     Route: 048
     Dates: start: 20101230
  4. MAGNESIUM HYDROXIDE [Concomitant]
     Indication: PROPHYLAXIS
     Route: 048
     Dates: start: 20101120
  5. DOCETAXEL [Suspect]
     Route: 042
     Dates: start: 20110202, end: 20110202
  6. OXYCODONE [Concomitant]
     Route: 048
     Dates: start: 20101221, end: 20101229
  7. FLUCONAZOLE [Concomitant]
     Indication: ORAL FUNGAL INFECTION
     Route: 048
     Dates: start: 20110120
  8. GLYCERYL TRINITRATE [Concomitant]
     Indication: ANGINA PECTORIS
     Route: 060
     Dates: start: 20070529
  9. PREDNISONE [Suspect]
     Dates: start: 20110202
  10. ZOPICLONE [Concomitant]
     Indication: INSOMNIA
     Route: 048
     Dates: start: 20101109
  11. SODIUM THIOSULFATE [Concomitant]
     Indication: PROPHYLAXIS
     Route: 048
     Dates: start: 20101021
  12. BLINDED THERAPY [Suspect]
     Indication: PROSTATE CANCER
     Route: 048
     Dates: start: 20101021
  13. PREDNISONE [Suspect]
     Indication: PROSTATE CANCER
     Dates: start: 20101021
  14. ONDANSETRON [Concomitant]
     Indication: NAUSEA
     Route: 048
     Dates: start: 20101021
  15. METOCLOPRAMIDE [Concomitant]
     Indication: NAUSEA
     Route: 048
     Dates: start: 20101021
  16. METOPROLOL SUCCINATE [Concomitant]
     Indication: ATRIAL FIBRILLATION
     Route: 048
     Dates: start: 20070531
  17. ALFACALCIDOL [Concomitant]
     Indication: VITAMIN SUPPLEMENTATION
     Route: 048
     Dates: start: 20101106
  18. FUROSEMIDE [Concomitant]
     Route: 048
     Dates: start: 20101109
  19. ACETYLSALICYLIC ACID [Concomitant]
     Route: 048
     Dates: start: 20101109
  20. ACETYLCYSTEINE [Concomitant]
     Route: 048
     Dates: start: 20030627
  21. OMEPRAZOLE [Concomitant]
     Indication: DUODENITIS
     Route: 048
     Dates: start: 20100903
  22. OXYCODONE [Concomitant]
     Indication: PAIN IN EXTREMITY
     Route: 048
     Dates: start: 20101221, end: 20101229
  23. FLUARIX [Concomitant]
     Route: 048
     Dates: start: 20110112, end: 20110112
  24. LOPERAMIDE [Concomitant]
     Route: 048
     Dates: start: 20101122
  25. BETAMETHASONE [Concomitant]
     Indication: PREMEDICATION
     Route: 048
     Dates: start: 20110111, end: 20110113
  26. TERBUTALINE [Concomitant]
     Route: 055
     Dates: start: 20050218
  27. CARBOMER [Concomitant]
     Dates: start: 20110103
  28. METOPROLOL SUCCINATE [Concomitant]
     Indication: HYPERTONIA
     Route: 048
     Dates: start: 20070531
  29. LEUPRORELIN [Concomitant]
     Indication: PROSTATE CANCER
     Route: 058
     Dates: start: 20100226
  30. DOCETAXEL [Suspect]
     Indication: PROSTATE CANCER
     Route: 042
     Dates: start: 20101021, end: 20101021
  31. CIPROFLOXACIN [Concomitant]
     Indication: FEBRILE NEUTROPENIA
     Route: 048
     Dates: start: 20110121, end: 20110128
  32. FUSIDATE SODIUM [Concomitant]
     Indication: CONJUNCTIVITIS
     Dates: start: 20110103, end: 20110112
  33. CALCIUM-SANDOZ [Concomitant]
     Route: 048
     Dates: start: 20101114
  34. MOVIPREP [Concomitant]
     Indication: PROPHYLAXIS
     Route: 048
     Dates: start: 20101027

REACTIONS (1)
  - TRANSIENT ISCHAEMIC ATTACK [None]
